FAERS Safety Report 9148270 (Version 1)
Quarter: 2013Q1

REPORT INFORMATION
  Report Type: Spontaneous
  Country: US (occurrence: None)
  Receive Date: 20130228
  Receipt Date: 20130228
  Transmission Date: 20140127
  Serious: Yes (Other)
  Sender: FDA-Public Use
  Company Number: None

PATIENT
  Age: 15 Year
  Sex: Female
  Weight: 49.9 kg

DRUGS (1)
  1. LEVETIRACETAM [Suspect]
     Dosage: 500MG P.O.
     Route: 048

REACTIONS (2)
  - Convulsion [None]
  - Drug effect decreased [None]
